FAERS Safety Report 12647657 (Version 7)
Quarter: 2017Q3

REPORT INFORMATION
  Report Type: Report from Study
  Country: CO (occurrence: CO)
  Receive Date: 20160812
  Receipt Date: 20170818
  Transmission Date: 20171127
  Serious: Yes (Life-Threatening, Hospitalization, Other)
  Sender: FDA-Public Use
  Company Number: PHHY2016CO109801

PATIENT
  Age: 48 Year
  Sex: Female
  Weight: 49 kg

DRUGS (12)
  1. BISACODYL. [Concomitant]
     Active Substance: BISACODYL
     Indication: PRODUCT USED FOR UNKNOWN INDICATION
     Dosage: 5 MG, UNK
     Route: 048
  2. LOSARTAN. [Concomitant]
     Active Substance: LOSARTAN
     Dosage: 50 MG, BID (TWICE A DAILY)
     Route: 048
  3. FUROSEMIDE. [Concomitant]
     Active Substance: FUROSEMIDE
     Indication: FLUID RETENTION
     Dosage: 20 MG, PRN
     Route: 048
  4. MORPHINE [Concomitant]
     Active Substance: MORPHINE
     Indication: PRODUCT USED FOR UNKNOWN INDICATION
     Dosage: 30 MG, (10 DROPS EVERY 8 HOURS)
     Route: 048
  5. INSULIN [Concomitant]
     Active Substance: INSULIN NOS
     Indication: PRODUCT USED FOR UNKNOWN INDICATION
     Route: 065
  6. SANDOSTATIN LAR DEPOT [Suspect]
     Active Substance: OCTREOTIDE ACETATE
     Indication: NEUROENDOCRINE TUMOUR
     Dosage: 30 MG, QMO (ONCE A MONTH)
     Route: 030
     Dates: start: 20150115
  7. THYROXINE [Concomitant]
     Active Substance: LEVOTHYROXINE
     Indication: THYROID DISORDER
     Dosage: 50 MG, QD
     Route: 048
  8. LOSARTAN. [Concomitant]
     Active Substance: LOSARTAN
     Indication: HYPERTENSION
     Dosage: 50 MG, Q12H
     Route: 048
  9. AFINITOR [Suspect]
     Active Substance: EVEROLIMUS
     Indication: NEUROENDOCRINE TUMOUR
     Dosage: 10 MG, QD (ONCE A DAILY)
     Route: 048
     Dates: start: 20160115
  10. LEVOTHYROXINE. [Concomitant]
     Active Substance: LEVOTHYROXINE
     Indication: THYROID DISORDER
     Dosage: 50 MG, QD (ONCE
     Route: 048
  11. HYDROCODONE BITARTRATE AND ACETAMINOPHEN [Concomitant]
     Active Substance: ACETAMINOPHEN\HYDROCODONE BITARTRATE
     Indication: PRODUCT USED FOR UNKNOWN INDICATION
     Route: 065
  12. TIROXIN [Concomitant]
     Indication: PRODUCT USED FOR UNKNOWN INDICATION
     Route: 065

REACTIONS (37)
  - Blood glucose increased [Unknown]
  - Pulmonary embolism [Unknown]
  - Dyskinesia [Unknown]
  - Choking sensation [Unknown]
  - Haemorrhoids [Unknown]
  - General physical health deterioration [Unknown]
  - Amnesia [Unknown]
  - Depressed mood [Unknown]
  - Chest pain [Unknown]
  - Vomiting [Unknown]
  - Abdominal distension [Unknown]
  - Hypertension [Unknown]
  - Bladder injury [Unknown]
  - Arthralgia [Unknown]
  - Application site mass [Unknown]
  - Spinal column injury [Unknown]
  - Malignant neoplasm progression [Unknown]
  - Feeling cold [Unknown]
  - Headache [Not Recovered/Not Resolved]
  - Psychiatric symptom [Unknown]
  - Metastases to bone [Unknown]
  - Feeding disorder [Unknown]
  - Spondylitis [Unknown]
  - Pain in extremity [Unknown]
  - Asphyxia [Unknown]
  - Hypotension [Unknown]
  - Abdominal pain upper [Unknown]
  - Glaucoma [Unknown]
  - Tumour marker increased [Unknown]
  - Oropharyngeal plaque [Unknown]
  - Depression [Unknown]
  - Rash generalised [Unknown]
  - Dizziness [Unknown]
  - Haemoglobin decreased [Unknown]
  - Dyspnoea [Unknown]
  - Application site pain [Unknown]
  - Fatigue [Unknown]

NARRATIVE: CASE EVENT DATE: 20160724
